FAERS Safety Report 9547977 (Version 1)
Quarter: 2013Q3

REPORT INFORMATION
  Report Type: Spontaneous
  Country: US (occurrence: US)
  Receive Date: 20130924
  Receipt Date: 20130924
  Transmission Date: 20140515
  Serious: Yes (Hospitalization, Other)
  Sender: FDA-Public Use
  Company Number: US-NAPPMUNDI-USA-2012-0087380

PATIENT
  Age: 65 Year
  Sex: Female

DRUGS (4)
  1. MS CONTIN TABLETS [Suspect]
     Indication: PRODUCT USED FOR UNKNOWN INDICATION
     Dosage: UNK, SEE TEXT
     Route: 048
  2. REVLIMID [Suspect]
     Indication: PLASMA CELL MYELOMA
     Dosage: 30 MG, BID
     Route: 048
     Dates: start: 20100824
  3. PERCOCET                           /00446701/ [Concomitant]
  4. NEURONTIN [Concomitant]

REACTIONS (5)
  - Incorrect dose administered [Unknown]
  - Gait disturbance [Recovered/Resolved]
  - Hallucination [Recovered/Resolved]
  - Confusional state [Recovered/Resolved]
  - Asthenia [Recovered/Resolved]
